FAERS Safety Report 6091246-8 (Version None)
Quarter: 2009Q1

REPORT INFORMATION
  Report Type: 
  Country: None (occurrence: None)
  Receive Date: 20090220
  Receipt Date: 20090220
  Transmission Date: 20090719
  Serious: Yes (Other)
  Sender: FDA-Public Use
  Company Number: None

PATIENT
  Sex: Male

DRUGS (1)
  1. PRECEDEX [Suspect]
     Dosage: 0.4MCG/KG/HR
     Dates: start: 20081213, end: 20081215

REACTIONS (2)
  - BRADYCARDIA [None]
  - HYPOTENSION [None]
